FAERS Safety Report 7368430-6 (Version None)
Quarter: 2011Q1

REPORT INFORMATION
  Report Type: 
  Country: None (occurrence: None)
  Receive Date: 20110323
  Receipt Date: 20110309
  Transmission Date: 20110831
  Serious: Yes (Other)
  Sender: FDA-Public Use
  Company Number: CA-JNJFOC-20100605346

PATIENT
  Sex: Male
  Weight: 98.8 kg

DRUGS (4)
  1. REMICADE [Suspect]
     Indication: ANKYLOSING SPONDYLITIS
     Route: 042
  2. OXYCET [Concomitant]
     Indication: PAIN
  3. OXYCONTIN [Concomitant]
     Indication: PAIN
  4. TYLENOL W/ CODEINE [Concomitant]
     Indication: PAIN

REACTIONS (1)
  - SUPRAVENTRICULAR TACHYCARDIA [None]
